FAERS Safety Report 9758445 (Version 1)
Quarter: 2013Q4

REPORT INFORMATION
  Report Type: Spontaneous
  Country: US (occurrence: None)
  Receive Date: 20131213
  Receipt Date: 20131213
  Transmission Date: 20140711
  Serious: Yes (Hospitalization)
  Sender: FDA-Public Use
  Company Number: None

PATIENT
  Age: 52 Year
  Sex: Female
  Weight: 75 kg

DRUGS (4)
  1. INVOKANA [Suspect]
     Indication: TYPE 2 DIABETES MELLITUS
     Route: 048
     Dates: start: 20131008, end: 20131119
  2. METFORMIN [Concomitant]
  3. LISINOPRIL [Concomitant]
  4. LEVAQUIN [Concomitant]

REACTIONS (4)
  - Sinusitis [None]
  - Renal failure acute [None]
  - Lactic acidosis [None]
  - Dehydration [None]
